FAERS Safety Report 19260097 (Version 1)
Quarter: 2021Q2

REPORT INFORMATION
  Report Type: Spontaneous
  Country: US (occurrence: US)
  Receive Date: 20210514
  Receipt Date: 20210514
  Transmission Date: 20210717
  Serious: No
  Sender: FDA-Public Use
  Company Number: US-JAZZ-JPI-P-021830

PATIENT
  Sex: Male
  Weight: 95 kg

DRUGS (6)
  1. NASONEX [Concomitant]
     Active Substance: MOMETASONE FUROATE
  2. LEVOTHYROXINE. [Concomitant]
     Active Substance: LEVOTHYROXINE
  3. PREVACID [Concomitant]
     Active Substance: LANSOPRAZOLE
  4. XYREM [Suspect]
     Active Substance: SODIUM OXYBATE
     Indication: NARCOLEPSY
     Dosage: 2.25 GRAM, BID
     Route: 048
     Dates: start: 20120507
  5. XYREM [Suspect]
     Active Substance: SODIUM OXYBATE
     Indication: CATAPLEXY
     Dosage: 3.75 GRAM, BID
     Route: 048
  6. VYVANSE [Concomitant]
     Active Substance: LISDEXAMFETAMINE DIMESYLATE

REACTIONS (5)
  - Tension [Not Recovered/Not Resolved]
  - Vision blurred [Not Recovered/Not Resolved]
  - Blood pressure decreased [Recovered/Resolved]
  - Head discomfort [Not Recovered/Not Resolved]
  - Blood pressure systolic increased [Not Recovered/Not Resolved]

NARRATIVE: CASE EVENT DATE: 2012
